FAERS Safety Report 12370665 (Version 6)
Quarter: 2016Q3

REPORT INFORMATION
  Report Type: Spontaneous
  Country: CN (occurrence: CN)
  Receive Date: 20160516
  Receipt Date: 20160704
  Transmission Date: 20161109
  Serious: Yes (Other)
  Sender: FDA-Public Use
  Company Number: CN-009507513-1605CHN006425

PATIENT
  Age: 55 Year
  Sex: Male
  Weight: 83.5 kg

DRUGS (21)
  1. RECOMBINANT HUMAN ENDOSTATIN [Concomitant]
     Active Substance: ENDOSTATIN
     Indication: ADJUVANT THERAPY
     Dosage: STRENGTH: 105 MG;105 MG, ONCE
     Route: 041
     Dates: start: 20141203, end: 20141203
  2. EMEND [Suspect]
     Active Substance: APREPITANT
     Dosage: 80 MG, ONCE, DAY 3
     Route: 048
     Dates: start: 20141205, end: 20141205
  3. POTASSIUM ASPARTATE [Concomitant]
     Active Substance: POTASSIUM ASPARTATE
     Indication: ELECTROLYTE SUBSTITUTION THERAPY
     Dosage: 10 ML/CC, QD
     Route: 041
     Dates: start: 20141127, end: 20141206
  4. DEXAMETHASONE SODIUM PHOSPHATE. [Concomitant]
     Active Substance: DEXAMETHASONE SODIUM PHOSPHATE
     Indication: PROPHYLAXIS OF NAUSEA AND VOMITING
     Dosage: 5 MG, QD
     Route: 042
     Dates: start: 20141203, end: 20141205
  5. DEXAMETHASONE SODIUM PHOSPHATE. [Concomitant]
     Active Substance: DEXAMETHASONE SODIUM PHOSPHATE
     Dosage: 5 MG, ONCE
     Route: 042
     Dates: start: 20141211, end: 20141211
  6. PHOSPHOCREATINE SODIUM [Concomitant]
     Indication: CARDIOVASCULAR EVENT PROPHYLAXIS
     Dosage: 1 G, QD
     Route: 041
     Dates: start: 20141203, end: 20141212
  7. CISPLATIN. [Suspect]
     Active Substance: CISPLATIN
     Indication: CHEMOTHERAPY
     Dosage: 48 MG, CYCLICAL, TREATMENT CYCLE:1, TREATMENT REGIMEN: GP
     Route: 041
     Dates: start: 20141203, end: 20141203
  8. GEMCITABINE [Concomitant]
     Active Substance: GEMCITABINE\GEMCITABINE HYDROCHLORIDE
     Indication: CHEMOTHERAPY
     Dosage: 1950 MG, CYCLICAL, TREATMENT REGIMEN: GP, TREATMENT CYCLE:1
     Route: 041
     Dates: start: 20141203, end: 20141203
  9. PALONOSETRON HYDROCHLORIDE. [Concomitant]
     Active Substance: PALONOSETRON HYDROCHLORIDE
     Dosage: 0.25 MG, ONCE
     Route: 042
     Dates: start: 20141211, end: 20141211
  10. EMEND [Suspect]
     Active Substance: APREPITANT
     Dosage: 80 MG, ONCE, DAY 2
     Route: 048
     Dates: start: 20141204, end: 20141204
  11. BO ZHI TANG TAI ZHU SHE YE [Concomitant]
     Indication: IMMUNISATION
     Dosage: 10 MG, QD
     Route: 041
     Dates: start: 20141202, end: 20141207
  12. PALONOSETRON HYDROCHLORIDE. [Concomitant]
     Active Substance: PALONOSETRON HYDROCHLORIDE
     Indication: PROPHYLAXIS OF NAUSEA AND VOMITING
     Dosage: 0.25 MG, QD
     Route: 042
     Dates: start: 20141203, end: 20141205
  13. BO ZHI TANG TAI ZHU SHE YE [Concomitant]
     Dosage: 10 MG, QD
     Route: 041
     Dates: start: 20141211, end: 20141211
  14. RECOMBINANT HUMAN ENDOSTATIN [Concomitant]
     Active Substance: ENDOSTATIN
     Dosage: STRENGTH: 100 MG; 100 MG, ONCE
     Route: 041
     Dates: start: 20141206, end: 20141206
  15. PROMETHAZINE HYDROCHLORIDE. [Concomitant]
     Active Substance: PROMETHAZINE HYDROCHLORIDE
     Indication: SEDATIVE THERAPY
     Dosage: 25 MG, ONCE
     Route: 030
     Dates: start: 20141205, end: 20141205
  16. ATROPINE SULFATE. [Concomitant]
     Active Substance: ATROPINE SULFATE
     Indication: DRUG THERAPY ENHANCEMENT
     Dosage: 0.25 MG, ONCE
     Route: 030
     Dates: start: 20141127, end: 20141127
  17. CALCIUM CARBONATE (+) DEXTROSE (+) MAGNESIUM OXIDE (+) POTASSIUM CHLOR [Concomitant]
     Indication: ELECTROLYTE SUBSTITUTION THERAPY
     Dosage: 500 ML, QD
     Route: 041
     Dates: start: 20141203, end: 20141206
  18. EMEND [Suspect]
     Active Substance: APREPITANT
     Indication: PROPHYLAXIS OF NAUSEA AND VOMITING
     Dosage: 125 MG, ONCE, DAY 1
     Route: 048
     Dates: start: 20141203, end: 20141203
  19. LIDOCAINE HYDROCHLORIDE. [Concomitant]
     Active Substance: LIDOCAINE HYDROCHLORIDE
     Indication: ANAESTHESIA
     Dosage: 20 ML/CC, ONCE
     Route: 041
     Dates: start: 20141126, end: 20141126
  20. LANSOPRAZOLE. [Concomitant]
     Active Substance: LANSOPRAZOLE
     Indication: DYSPEPSIA
     Dosage: 30 MG, QD
     Route: 041
     Dates: start: 20141127, end: 20141212
  21. SHEN KANG ZHU SHE YE [Concomitant]
     Indication: PROPHYLAXIS
     Dosage: 100 ML/CC, QD
     Route: 041
     Dates: start: 20141203, end: 20141207

REACTIONS (1)
  - Cardiotoxicity [Recovered/Resolved]

NARRATIVE: CASE EVENT DATE: 20141203
